FAERS Safety Report 5267806-0 (Version None)
Quarter: 2007Q1

REPORT INFORMATION
  Report Type: 
  Country: None (occurrence: None)
  Receive Date: 20070316
  Receipt Date: 20070306
  Transmission Date: 20070707
  Serious: Yes (Other)
  Sender: FDA-Public Use
  Company Number: PL-PFIZER INC-2007018074

PATIENT
  Sex: Male

DRUGS (1)
  1. CARDURA [Suspect]

REACTIONS (4)
  - ASTHENIA [None]
  - HYPERHIDROSIS [None]
  - MALAISE [None]
  - MYOCARDIAL ISCHAEMIA [None]
